FAERS Safety Report 11706632 (Version 1)
Quarter: 2015Q4

REPORT INFORMATION
  Report Type: Spontaneous
  Country: PH (occurrence: PH)
  Receive Date: 20151106
  Receipt Date: 20151106
  Transmission Date: 20160304
  Serious: Yes (Other)
  Sender: FDA-Public Use
  Company Number: PH-BRISTOL-MYERS SQUIBB COMPANY-BMS-2015-076332

PATIENT
  Age: 92 Year
  Sex: Female

DRUGS (1)
  1. ELIQUIS [Suspect]
     Active Substance: APIXABAN
     Indication: PRODUCT USED FOR UNKNOWN INDICATION
     Dosage: 5 MG, UNK
     Route: 065

REACTIONS (4)
  - Haemorrhage [Unknown]
  - Haematoma [Unknown]
  - Radial nerve compression [Unknown]
  - Muscle rupture [Unknown]
